FAERS Safety Report 12972582 (Version 1)
Quarter: 2016Q4

REPORT INFORMATION
  Report Type: Report from Study
  Country: US (occurrence: US)
  Receive Date: 20161124
  Receipt Date: 20161124
  Transmission Date: 20170207
  Serious: Yes (Other)
  Sender: FDA-Public Use
  Company Number: US-PROSTRAKAN-2016-US-0102

PATIENT

DRUGS (2)
  1. GRANISETRON [Suspect]
     Active Substance: GRANISETRON
     Indication: DRUG LEVEL
     Dosage: 1 PATCH FOR 7 DAYS
     Route: 062
     Dates: start: 20130202, end: 20130204
  2. SANCUSO [Suspect]
     Active Substance: GRANISETRON
     Indication: DRUG LEVEL
     Dosage: 1 MG IV OVER 5 MINUTES
     Route: 042

REACTIONS (4)
  - Gestational diabetes [Unknown]
  - Exposure during pregnancy [Unknown]
  - Rash [Recovered/Resolved]
  - Injection site pruritus [Unknown]

NARRATIVE: CASE EVENT DATE: 20130202
